FAERS Safety Report 11101498 (Version 1)
Quarter: 2015Q2

REPORT INFORMATION
  Report Type: Spontaneous
  Country: US (occurrence: US)
  Receive Date: 20150508
  Receipt Date: 20150508
  Transmission Date: 20150821
  Serious: Yes (Other)
  Sender: FDA-Public Use
  Company Number: US-ACTELION-A-NJ2015-117513

PATIENT
  Age: 38 Year
  Sex: Female

DRUGS (12)
  1. TAXOTERE [Concomitant]
     Active Substance: DOCETAXEL
  2. SOTALOL. [Concomitant]
     Active Substance: SOTALOL
  3. ADCIRCA [Concomitant]
     Active Substance: TADALAFIL
  4. CARBOPLATIN. [Concomitant]
     Active Substance: CARBOPLATIN
  5. TREPROSTINIL DIOLAMIN [Concomitant]
     Active Substance: TREPROSTINIL DIOLAMINE
  6. CRANBERRY. [Concomitant]
     Active Substance: CRANBERRY
  7. VITAMIN C [Concomitant]
     Active Substance: ASCORBIC ACID
  8. MULTIVITAMIN [Concomitant]
     Active Substance: VITAMINS
  9. PERTUZUMAB [Concomitant]
     Active Substance: PERTUZUMAB
  10. OPSUMIT [Suspect]
     Active Substance: MACITENTAN
     Indication: PULMONARY ARTERIAL HYPERTENSION
     Dosage: 10 MG, UNK
     Route: 048
     Dates: start: 20150212
  11. HERCEPTIN [Concomitant]
     Active Substance: TRASTUZUMAB
  12. BENADRYL [Concomitant]
     Active Substance: DIPHENHYDRAMINE HYDROCHLORIDE

REACTIONS (2)
  - Chemotherapy [Unknown]
  - Vomiting [Recovered/Resolved]

NARRATIVE: CASE EVENT DATE: 20150423
